FAERS Safety Report 9277105 (Version 2)
Quarter: 2013Q2

REPORT INFORMATION
  Report Type: Spontaneous
  Country: BR (occurrence: BR)
  Receive Date: 20130507
  Receipt Date: 20130619
  Transmission Date: 20140414
  Serious: Yes (Death, Hospitalization, Other)
  Sender: FDA-Public Use
  Company Number: BR-ELI_LILLY_AND_COMPANY-BR201304008807

PATIENT
  Age: 88 Year
  Sex: Female
  Weight: 50 kg

DRUGS (2)
  1. FORTEO [Suspect]
     Dosage: UNK, QD
     Route: 065
     Dates: start: 201302, end: 20130427
  2. ASPIRINA [Concomitant]
     Indication: CARDIOVASCULAR DISORDER
     Dosage: UNK, UNKNOWN
     Route: 065

REACTIONS (7)
  - Pneumonia [Fatal]
  - Arrhythmia [Fatal]
  - Upper limb fracture [Unknown]
  - Hip fracture [Recovering/Resolving]
  - Fall [Unknown]
  - Osteoporosis [Unknown]
  - Balance disorder [Unknown]
